FAERS Safety Report 17510197 (Version 3)
Quarter: 2020Q2

REPORT INFORMATION
  Report Type: Spontaneous
  Country: US (occurrence: US)
  Receive Date: 20200306
  Receipt Date: 20200505
  Transmission Date: 20200713
  Serious: No
  Sender: FDA-Public Use
  Company Number: US-PFIZER INC-2020100656

PATIENT
  Age: 67 Year
  Sex: Female

DRUGS (1)
  1. EUCRISA [Suspect]
     Active Substance: CRISABOROLE
     Indication: DERMATITIS ATOPIC
     Dosage: UNK, APPLY TO AFFECTED AREAS TWICE DAILY

REACTIONS (4)
  - Skin disorder [Unknown]
  - Drug hypersensitivity [Unknown]
  - Rash [Unknown]
  - Burning sensation [Unknown]
